FAERS Safety Report 9302696 (Version 1)
Quarter: 2013Q2

REPORT INFORMATION
  Report Type: Spontaneous
  Country: DE (occurrence: DE)
  Receive Date: 20130522
  Receipt Date: 20130522
  Transmission Date: 20140414
  Serious: Yes (Disabling)
  Sender: FDA-Public Use
  Company Number: PHHY2013DE040046

PATIENT
  Sex: Female
  Weight: 59 kg

DRUGS (3)
  1. AFINITOR [Suspect]
     Indication: BREAST CANCER
     Dosage: 5 MG, DAILY
     Route: 048
     Dates: start: 20120514, end: 20130122
  2. TAMOXIFEN [Concomitant]
     Indication: METASTASES TO BREAST
     Dosage: 20 MG, DAILY
     Dates: start: 20120514
  3. VITAMIN B COMPLEX [Concomitant]
     Dosage: 1 DF, DAILY
     Dates: start: 2008

REACTIONS (3)
  - Cardiac failure [Recovering/Resolving]
  - Dyspnoea [Recovering/Resolving]
  - Blood count abnormal [Recovered/Resolved]
